FAERS Safety Report 24736497 (Version 1)
Quarter: 2024Q4

REPORT INFORMATION
  Report Type: Report from Study
  Country: GR (occurrence: None)
  Receive Date: 20241216
  Receipt Date: 20241216
  Transmission Date: 20250114
  Serious: Yes (Death, Other)
  Sender: UNKNOWN
  Company Number: GR-ADDMEDICA-2023000074

PATIENT
  Age: 57 Year
  Sex: Female

DRUGS (1)
  1. HYDROXYUREA [Suspect]
     Active Substance: HYDROXYUREA
     Indication: Cerebrovascular accident prophylaxis
     Route: 048
     Dates: start: 20160404

REACTIONS (1)
  - Acute myeloid leukaemia [Fatal]

NARRATIVE: CASE EVENT DATE: 20230101
